FAERS Safety Report 4632420-4 (Version None)
Quarter: 2005Q2

REPORT INFORMATION
  Report Type: 
  Country: None (occurrence: None)
  Receive Date: 20050411
  Receipt Date: 20050331
  Transmission Date: 20051028
  Serious: Yes (Hospitalization)
  Sender: FDA-Public Use
  Company Number: US-JNJFOC-20050400461

PATIENT
  Sex: Female
  Weight: 72.12 kg

DRUGS (5)
  1. DURAGESIC-100 [Suspect]
     Route: 062
  2. DIGOXIN [Concomitant]
     Route: 049
  3. VERAPAMIL [Concomitant]
     Route: 049
  4. DIOVAN [Concomitant]
     Route: 049
  5. SINGULAIR [Concomitant]
     Indication: ASTHMA
     Route: 049

REACTIONS (3)
  - ASTHMA [None]
  - BRONCHITIS [None]
  - PNEUMONIA [None]
